FAERS Safety Report 9136830 (Version 3)
Quarter: 2013Q4

REPORT INFORMATION
  Report Type: Report from Study
  Country: JP (occurrence: JP)
  Receive Date: 20130304
  Receipt Date: 20131021
  Transmission Date: 20140711
  Serious: Yes (Other)
  Sender: FDA-Public Use
  Company Number: JP-VERTEX PHARMACEUTICAL INC.-2012-023644

PATIENT
  Age: 74 Year
  Sex: Female

DRUGS (18)
  1. VX-950 (TELAPREVIR) [Suspect]
     Indication: CHRONIC HEPATITIS C
     Dosage: 1500 MG, QD
     Route: 048
     Dates: start: 20120905, end: 20121008
  2. VX-950 (TELAPREVIR) [Suspect]
     Dosage: 750 MG, QD
     Route: 048
     Dates: start: 20121009, end: 20121030
  3. RIBAVIRIN [Suspect]
     Indication: CHRONIC HEPATITIS C
     Dosage: 400 MG, QD
     Route: 048
     Dates: start: 20120905, end: 20120925
  4. RIBAVIRIN [Suspect]
     Dosage: 200 MG, QD
     Route: 048
     Dates: start: 20120926, end: 20121008
  5. RIBAVIRIN [Suspect]
     Dosage: 2 C/ QW
     Route: 048
     Dates: start: 20121009, end: 20121030
  6. RIBAVIRIN [Suspect]
     Dosage: 2 C/ QW
     Route: 048
     Dates: start: 20121120
  7. PEGINTERFERON ALFA-2B [Suspect]
     Indication: CHRONIC HEPATITIS C
     Dosage: 1.35 ?G/KG, WEEK
     Route: 058
     Dates: start: 20120905
  8. AMLODIPINE OD [Concomitant]
     Dosage: 5 MG, QD
     Route: 048
     Dates: end: 20120911
  9. AMLODIPINE OD [Concomitant]
     Dosage: 2.5 MG, QD
     Route: 048
     Dates: start: 20120912
  10. OLMETEC [Concomitant]
     Dosage: 20 MG, QD
     Route: 048
  11. SENNOSIDE [Concomitant]
     Dosage: 24 MG, PRN/ QD
     Route: 048
  12. SENNOSIDE [Concomitant]
     Dosage: 24 MG, QD
     Route: 048
  13. CALONAL [Concomitant]
     Dosage: 400 MG, QD
     Route: 048
     Dates: start: 20120906, end: 20130121
  14. ALLOPURINOL [Concomitant]
     Dosage: 100 MG, QD
     Route: 048
     Dates: start: 20120907, end: 20121030
  15. PATANOL [Concomitant]
     Dosage: 4 DROPS (FOR BOTH EYES), QD
     Route: 031
     Dates: start: 20121002
  16. PRIMPERAN [Concomitant]
     Dosage: 15 MG, QD
     Route: 048
     Dates: end: 20130114
  17. LOXOPROFEN [Concomitant]
     Dosage: 120 MG, QD
     Route: 048
     Dates: start: 20130122
  18. REBAMIPIDE [Concomitant]
     Dosage: 200 MG, QD
     Route: 048
     Dates: start: 20130122

REACTIONS (2)
  - Renal impairment [Recovered/Resolved]
  - Erythema [Recovered/Resolved]
